FAERS Safety Report 9975881 (Version 1)
Quarter: 2014Q1

REPORT INFORMATION
  Report Type: Spontaneous
  Country: US (occurrence: US)
  Receive Date: 20140306
  Receipt Date: 20140306
  Transmission Date: 20141002
  Serious: No
  Sender: FDA-Public Use
  Company Number: US-PFIZER INC-2014060996

PATIENT
  Age: 7 Year
  Sex: Female

DRUGS (3)
  1. GENOTROPIN [Suspect]
     Indication: GONADAL DYSGENESIS
     Dosage: 1.2 MG, 6 DAYS PER WEEK
     Route: 058
     Dates: start: 201107
  2. CLARITIN-D 12 [Concomitant]
     Dosage: UNK
  3. NASONEX [Concomitant]
     Dosage: UNK

REACTIONS (2)
  - Blood urine present [Recovered/Resolved]
  - Thrombocytopenia [Unknown]
